FAERS Safety Report 24579920 (Version 1)
Quarter: 2024Q4

REPORT INFORMATION
  Report Type: Spontaneous
  Country: US (occurrence: None)
  Receive Date: 20241104
  Receipt Date: 20241104
  Transmission Date: 20250114
  Serious: No
  Sender: Public
  Company Number: None

PATIENT
  Age: 74 Year
  Sex: Male

DRUGS (1)
  1. LECANEMAB-IRMB [Suspect]
     Active Substance: LECANEMAB-IRMB
     Dosage: OTHER FREQUENCY : OTHER;?
     Route: 042
     Dates: start: 20240409, end: 20240802

REACTIONS (7)
  - Dizziness [None]
  - Headache [None]
  - Myalgia [None]
  - Fall [None]
  - Asthenia [None]
  - Hypoaesthesia [None]
  - Chills [None]

NARRATIVE: CASE EVENT DATE: 20240801
